FAERS Safety Report 11646213 (Version 1)
Quarter: 2015Q4

REPORT INFORMATION
  Report Type: Spontaneous
  Country: US (occurrence: US)
  Receive Date: 20151020
  Receipt Date: 20151020
  Transmission Date: 20160304
  Serious: No
  Sender: FDA-Public Use
  Company Number: US-ROCHE-ITM201506IM017692

PATIENT
  Sex: Male
  Weight: 81.72 kg

DRUGS (4)
  1. ESBRIET [Suspect]
     Active Substance: PIRFENIDONE
     Indication: IDIOPATHIC PULMONARY FIBROSIS
     Dosage: 1602 MG
     Route: 048
     Dates: start: 2015, end: 2015
  2. ESBRIET [Suspect]
     Active Substance: PIRFENIDONE
     Dosage: 3 CAPSULES THREE TIMES A DAY
     Route: 048
     Dates: start: 20150506
  3. ESBRIET [Suspect]
     Active Substance: PIRFENIDONE
     Dosage: 2 CAPSULES THREE TIMES A DAY
     Route: 048
  4. ESBRIET [Suspect]
     Active Substance: PIRFENIDONE
     Route: 048
     Dates: start: 20150611

REACTIONS (11)
  - Fatigue [Unknown]
  - Diarrhoea [Unknown]
  - Erythema [Unknown]
  - Abdominal discomfort [Unknown]
  - Blister [Unknown]
  - Constipation [Unknown]
  - Head discomfort [Unknown]
  - Drug intolerance [Unknown]
  - Nausea [Unknown]
  - Adverse drug reaction [Unknown]
  - Headache [Unknown]
